FAERS Safety Report 5487465-1 (Version None)
Quarter: 2007Q4

REPORT INFORMATION
  Report Type: 
  Country: None (occurrence: None)
  Receive Date: 20071015
  Receipt Date: 20071009
  Transmission Date: 20080405
  Serious: Yes (Hospitalization)
  Sender: FDA-Public Use
  Company Number: 510-5-2004-30645

PATIENT
  Age: 75 Year
  Sex: Female
  Weight: 80 kg

DRUGS (37)
  1. LIDOCAINE [Suspect]
     Indication: POST HERPETIC NEURALGIA
     Dosage: 1 PATCH A DAY
     Dates: start: 20040116
  2. NEURONTIN [Concomitant]
  3. MORPHINE [Concomitant]
  4. SEREVENT [Concomitant]
  5. IMOVANE [Concomitant]
  6. LASIX [Concomitant]
  7. DAFLON [Concomitant]
  8. TAVANIC [Concomitant]
  9. SINGULAIR [Concomitant]
  10. ATROVENT [Concomitant]
  11. FLIXOTIDE [Concomitant]
  12. BURINEX [Concomitant]
  13. DUOVENT [Concomitant]
  14. LYSOMUCIL [Concomitant]
  15. REDOXON [Concomitant]
  16. OL-AMINE [Concomitant]
  17. CIPROFLOXACIN [Concomitant]
  18. FRAXIPARINE [Concomitant]
  19. MERONEM [Concomitant]
  20. MONURIL [Concomitant]
  21. DULCOLAX [Concomitant]
  22. TOPAMAX [Concomitant]
  23. PERENTEROL [Concomitant]
  24. SOLU-MEDROL [Concomitant]
  25. DAFALGAN [Concomitant]
  26. MYOLASTAN [Concomitant]
  27. OMEPRAZOLE [Concomitant]
  28. MS CONTIN [Concomitant]
  29. AVELOX [Concomitant]
  30. LINCOCIN [Concomitant]
  31. OXYBUTYNIN CHLORIDE [Concomitant]
  32. ZOPICLONE [Concomitant]
  33. NITROFURANTOIN [Concomitant]
  34. TILCOTIL [Concomitant]
  35. LACTULOSE [Concomitant]
  36. ZANTAC [Concomitant]
  37. SPIRONOLACTONE [Concomitant]

REACTIONS (12)
  - B-CELL LYMPHOMA [None]
  - BONE PAIN [None]
  - COMPRESSION FRACTURE [None]
  - CONDITION AGGRAVATED [None]
  - GENERAL PHYSICAL HEALTH DETERIORATION [None]
  - NEPHROTIC SYNDROME [None]
  - OSTEOPOROSIS [None]
  - PNEUMONIA [None]
  - POSTOPERATIVE WOUND INFECTION [None]
  - PYREXIA [None]
  - SPINAL COLUMN STENOSIS [None]
  - WOUND INFECTION BACTERIAL [None]
